FAERS Safety Report 9141021 (Version 1)
Quarter: 2013Q1

REPORT INFORMATION
  Report Type: Spontaneous
  Country: US (occurrence: US)
  Receive Date: 20130305
  Receipt Date: 20130305
  Transmission Date: 20140127
  Serious: Yes (Hospitalization, Other)
  Sender: FDA-Public Use
  Company Number: US-BAXTER-2013BAX007919

PATIENT
  Age: 51 Year
  Sex: Male

DRUGS (1)
  1. DIANEAL LOW CALCIUM [Suspect]
     Indication: PERITONEAL DIALYSIS
     Route: 033

REACTIONS (5)
  - Fall [Not Recovered/Not Resolved]
  - Stress fracture [Not Recovered/Not Resolved]
  - Pain in extremity [Unknown]
  - Pain [Unknown]
  - Dysstasia [Unknown]
